FAERS Safety Report 4347841-7 (Version None)
Quarter: 2004Q2

REPORT INFORMATION
  Report Type: 
  Country: None (occurrence: None)
  Receive Date: 20040422
  Receipt Date: 20040407
  Transmission Date: 20050107
  Serious: Yes (Hospitalization, Other)
  Sender: FDA-Public Use
  Company Number: 172672

PATIENT
  Age: 38 Year
  Sex: Female
  Weight: 49.8957 kg

DRUGS (5)
  1. AVONEX [Suspect]
     Indication: MULTIPLE SCLEROSIS
     Dosage: 30 MCG QW IM
     Route: 030
     Dates: start: 20030301, end: 20031201
  2. AVONEX [Suspect]
     Indication: MULTIPLE SCLEROSIS
     Dosage: 30 MCG QW IM
     Route: 030
     Dates: start: 20031201
  3. DEPAKOTE [Concomitant]
  4. EFFEXOR [Concomitant]
  5. DARVOCET-N 100 [Concomitant]

REACTIONS (4)
  - BREAST CANCER [None]
  - CONDITION AGGRAVATED [None]
  - INSOMNIA [None]
  - MULTIPLE SCLEROSIS [None]
